FAERS Safety Report 18672454 (Version 1)
Quarter: 2020Q4

REPORT INFORMATION
  Report Type: Spontaneous
  Country: US (occurrence: US)
  Receive Date: 20201228
  Receipt Date: 20201228
  Transmission Date: 20210114
  Serious: No
  Sender: FDA-Public Use
  Company Number: US-PFIZER INC-2020064224

PATIENT
  Age: 64 Year
  Sex: Male
  Weight: 66.68 kg

DRUGS (2)
  1. INSPRA [Suspect]
     Active Substance: EPLERENONE
     Dosage: 100 MG, 2X/DAY (50MG TABLET BY MOUTH, 2 TABLETS, 2 TIMES DAILY)
     Route: 048
     Dates: start: 2019
  2. INSPRA [Suspect]
     Active Substance: EPLERENONE
     Indication: HYPERALDOSTERONISM
     Dosage: 50 MG

REACTIONS (3)
  - Off label use [Unknown]
  - Product dispensing error [Unknown]
  - Hypertension [Unknown]
